FAERS Safety Report 7010887-4 (Version None)
Quarter: 2010Q3

REPORT INFORMATION
  Report Type: 
  Country: None (occurrence: None)
  Receive Date: 20100923
  Receipt Date: 20100923
  Transmission Date: 20110219
  Serious: Yes (Hospitalization)
  Sender: FDA-Public Use
  Company Number: None

PATIENT
  Age: 48 Year
  Sex: Male
  Weight: 100 kg

DRUGS (1)
  1. ARIPIPRAZOLE [Suspect]
     Dosage: 5MG QAM PO
     Route: 048
     Dates: start: 20100607, end: 20100714

REACTIONS (3)
  - HYPOTENSION [None]
  - SINUS BRADYCARDIA [None]
  - SYNCOPE [None]
